FAERS Safety Report 10563142 (Version 1)
Quarter: 2014Q4

REPORT INFORMATION
  Report Type: Spontaneous
  Country: US (occurrence: None)
  Receive Date: 20141103
  Receipt Date: 20141103
  Transmission Date: 20150529
  Serious: Yes (Hospitalization, Other)
  Sender: FDA-Public Use
  Company Number: None

PATIENT
  Sex: Female
  Weight: 68.04 kg

DRUGS (1)
  1. PRILOSEC [Suspect]
     Active Substance: OMEPRAZOLE MAGNESIUM
     Indication: DYSPEPSIA
     Dosage: ONE PILL ONCE DAILY TAKEN BY MOUTH
     Route: 048

REACTIONS (4)
  - Foot fracture [None]
  - Fall [None]
  - Tibia fracture [None]
  - Fibula fracture [None]

NARRATIVE: CASE EVENT DATE: 20140201
